FAERS Safety Report 9401308 (Version 3)
Quarter: 2013Q3

REPORT INFORMATION
  Report Type: Spontaneous
  Country: DE (occurrence: DE)
  Receive Date: 20130715
  Receipt Date: 20130829
  Transmission Date: 20140515
  Serious: Yes (Disabling)
  Sender: FDA-Public Use
  Company Number: DE-GILEAD-2013-0078922

PATIENT
  Age: 82 Year
  Sex: Male

DRUGS (11)
  1. RANOLAZINE [Suspect]
     Indication: PRODUCT USED FOR UNKNOWN INDICATION
     Dosage: 500 MG, BID
     Route: 048
     Dates: start: 20130612
  2. RANOLAZINE [Suspect]
     Dosage: 375 MG, BID
     Route: 048
     Dates: start: 20130610, end: 20130611
  3. AMLODIPINE [Suspect]
     Indication: HYPERTENSION
     Dosage: 5 MG, QD
     Dates: end: 2013
  4. AMITRIPTYLINE [Concomitant]
     Indication: SLEEP DISORDER
     Dosage: 10 MG, QD
     Route: 065
     Dates: start: 201302
  5. TOREM                              /01036501/ [Concomitant]
     Indication: PRODUCT USED FOR UNKNOWN INDICATION
     Dosage: 30 MG, QD
     Dates: start: 20130702
  6. TOREM                              /01036501/ [Concomitant]
     Dosage: 10 MG, UNK
     Dates: end: 20130701
  7. BISOPROLOL [Concomitant]
     Indication: HYPERTENSION
     Dosage: 10 MG, QD
  8. ASPIRIN PROTECT [Concomitant]
     Indication: THROMBOSIS PROPHYLAXIS
     Dosage: 100 MG, QD
     Dates: start: 201301
  9. JANUVIA [Concomitant]
     Indication: TYPE 2 DIABETES MELLITUS
     Dosage: 100 MG, QD
  10. GLIMEPIRIDE [Concomitant]
     Indication: TYPE 2 DIABETES MELLITUS
     Dosage: 1 MG, QD
  11. VIGANTOLETTEN [Concomitant]
     Indication: OSTEOPOROSIS

REACTIONS (9)
  - Cough [Recovering/Resolving]
  - Sense of oppression [Recovering/Resolving]
  - Abnormal dreams [Recovering/Resolving]
  - Dyspnoea [Recovering/Resolving]
  - Nausea [Recovering/Resolving]
  - Confusional state [Recovering/Resolving]
  - Vision blurred [Recovering/Resolving]
  - Dry mouth [Recovering/Resolving]
  - Drug interaction [Recovering/Resolving]
